FAERS Safety Report 4595621-X (Version None)
Quarter: 2005Q1

REPORT INFORMATION
  Report Type: 
  Country: None (occurrence: None)
  Receive Date: 20050302
  Receipt Date: 20041104
  Transmission Date: 20050727
  Serious: Yes (Other)
  Sender: FDA-Public Use
  Company Number: PHNU2004DE03754

PATIENT
  Sex: Female
  Weight: 60 kg

DRUGS (2)
  1. SILICIA DRAGEES [Suspect]
     Dosage: UNK, PRN
     Dates: start: 20031101
  2. LAMISIL [Suspect]
     Indication: ONYCHOMYCOSIS
     Dosage: ALTOGETHER AT MOST 5 TABLETS
     Route: 048
     Dates: start: 20031201, end: 20031201

REACTIONS (18)
  - ARTHRALGIA [None]
  - ATROPHY [None]
  - CHEST DISCOMFORT [None]
  - DRUG INTERACTION [None]
  - DYSGEUSIA [None]
  - GLOSSODYNIA [None]
  - HUNGER [None]
  - HYPOAESTHESIA [None]
  - HYPOVENTILATION [None]
  - INTERVERTEBRAL DISC PROTRUSION [None]
  - MUSCLE SPASMS [None]
  - ORAL DYSAESTHESIA [None]
  - PERIPHERAL COLDNESS [None]
  - PERIPHERAL VASCULAR DISORDER [None]
  - RENAL PAIN [None]
  - TENDON DISORDER [None]
  - THROAT TIGHTNESS [None]
  - WEIGHT DECREASED [None]
